FAERS Safety Report 22095179 (Version 1)
Quarter: 2023Q1

REPORT INFORMATION
  Report Type: Spontaneous
  Country: US (occurrence: US)
  Receive Date: 20230314
  Receipt Date: 20230314
  Transmission Date: 20230417
  Serious: No
  Sender: FDA-Public Use
  Company Number: US-ELI_LILLY_AND_COMPANY-US202303002010

PATIENT
  Sex: Female

DRUGS (1)
  1. VERZENIO [Suspect]
     Active Substance: ABEMACICLIB
     Indication: Breast cancer female
     Dosage: 200 MG, BID
     Route: 048

REACTIONS (5)
  - Tremor [Unknown]
  - Confusional state [Unknown]
  - Cellulitis [Unknown]
  - Asthenia [Unknown]
  - Nausea [Unknown]
